FAERS Safety Report 17482149 (Version 1)
Quarter: 2020Q1

REPORT INFORMATION
  Report Type: Report from Study
  Country: FR (occurrence: FR)
  Receive Date: 20200302
  Receipt Date: 20200302
  Transmission Date: 20200409
  Serious: Yes (Hospitalization)
  Sender: FDA-Public Use
  Company Number: NVSC2020FR058088

PATIENT
  Age: 63 Year
  Sex: Female

DRUGS (1)
  1. GLIVEC [Suspect]
     Active Substance: IMATINIB MESYLATE
     Indication: CHRONIC MYELOID LEUKAEMIA
     Dosage: 6 DF, TID
     Route: 065
     Dates: start: 201202, end: 201309

REACTIONS (6)
  - Renal disorder [Unknown]
  - Swelling face [Unknown]
  - Eye swelling [Unknown]
  - Fatigue [Unknown]
  - Drug ineffective [Unknown]
  - Inappropriate schedule of product administration [Unknown]
